FAERS Safety Report 5123637-3 (Version None)
Quarter: 2006Q4

REPORT INFORMATION
  Report Type: 
  Country: None (occurrence: None)
  Receive Date: 20060910
  Receipt Date: 20060206
  Transmission Date: 20070319
  Serious: Yes (Other)
  Sender: FDA-Public Use
  Company Number: US200602001091

PATIENT
  Age: 64 Year
  Sex: Female

DRUGS (5)
  1. HUMULIN N [Suspect]
     Indication: DIABETES MELLITUS
     Dosage: SEE IMAGE
     Dates: start: 20040101, end: 20040101
  2. HUMULIN N [Suspect]
     Indication: DIABETES MELLITUS
     Dosage: SEE IMAGE
     Dates: start: 20040101, end: 20040101
  3. HUMULIN R [Suspect]
     Indication: DIABETES MELLITUS
     Dosage: SEE IMAGE
     Dates: start: 20040101, end: 20040101
  4. ILETIN [Suspect]
     Dosage: SEE IMAGE
     Dates: start: 19630101
  5. ILETIN [Suspect]
     Dosage: SEE IMAGE
     Dates: start: 19630101

REACTIONS (2)
  - FORMICATION [None]
  - LOSS OF CONSCIOUSNESS [None]
